FAERS Safety Report 13065415 (Version 1)
Quarter: 2016Q4

REPORT INFORMATION
  Report Type: Spontaneous
  Country: BR (occurrence: BR)
  Receive Date: 20161227
  Receipt Date: 20161227
  Transmission Date: 20170207
  Serious: Yes (Other)
  Sender: FDA-Public Use
  Company Number: BR-PFIZER INC-2016593422

PATIENT
  Age: 80 Year
  Sex: Male
  Weight: 60 kg

DRUGS (2)
  1. LIPITOR [Suspect]
     Active Substance: ATORVASTATIN CALCIUM
     Indication: HYPERCHOLESTEROLAEMIA
     Dosage: 20 MG, DAILY (1 TABLET, DAILY)
     Route: 048
     Dates: start: 2011
  2. PRIMID [Concomitant]
     Indication: ESSENTIAL TREMOR
     Dosage: 0.25 DF, DAILY (1/4 OF TABLET DAILY)
     Route: 048

REACTIONS (2)
  - Condition aggravated [Unknown]
  - Carotid artery occlusion [Unknown]

NARRATIVE: CASE EVENT DATE: 2016
